FAERS Safety Report 7953023-X (Version None)
Quarter: 2011Q4

REPORT INFORMATION
  Report Type: 
  Country: None (occurrence: None)
  Receive Date: 20111201
  Receipt Date: 20111125
  Transmission Date: 20120403
  Serious: Yes (Disabling)
  Sender: FDA-Public Use
  Company Number: GB-ABBOTT-11P-167-0872514-00

PATIENT
  Age: 47 Year
  Sex: Female

DRUGS (4)
  1. DIAZEPAM [Concomitant]
     Indication: PRODUCT USED FOR UNKNOWN INDICATION
  2. OLANZAPINE [Interacting]
     Indication: BIPOLAR DISORDER
     Route: 048
     Dates: start: 20110612, end: 20110906
  3. PROCYCLIDINE HYDROCHLORIDE 2MG TAB [Concomitant]
     Indication: PRODUCT USED FOR UNKNOWN INDICATION
  4. VALPROATE SODIUM [Suspect]
     Indication: BIPOLAR DISORDER
     Route: 048
     Dates: start: 20101018

REACTIONS (2)
  - OEDEMA PERIPHERAL [None]
  - DRUG INTERACTION [None]
